FAERS Safety Report 6196722-5 (Version None)
Quarter: 2009Q2

REPORT INFORMATION
  Report Type: 
  Country: None (occurrence: None)
  Receive Date: 20090520
  Receipt Date: 20090512
  Transmission Date: 20091009
  Serious: Yes (Hospitalization)
  Sender: FDA-Public Use
  Company Number: ES-MERCK-0905ESP00018

PATIENT
  Age: 55 Year
  Sex: Female

DRUGS (6)
  1. PRIMAXIN [Suspect]
     Route: 042
     Dates: start: 20080918, end: 20081031
  2. OMEPRAZOLE [Concomitant]
     Indication: PROPHYLAXIS AGAINST GASTROINTESTINAL ULCER
     Route: 042
     Dates: start: 20080612
  3. DIAZEPAM [Concomitant]
     Route: 058
     Dates: start: 20080625, end: 20081030
  4. ACETAMINOPHEN [Concomitant]
     Route: 042
     Dates: start: 20080612, end: 20081031
  5. DIHYDRALAZINE SULFATE [Concomitant]
     Indication: BLOOD PRESSURE INCREASED
     Route: 042
     Dates: start: 20080907, end: 20081024
  6. ENOXAPARIN SODIUM [Concomitant]
     Indication: PROPHYLAXIS AGAINST GASTROINTESTINAL ULCER
     Route: 058
     Dates: start: 20080612

REACTIONS (1)
  - LEUKOCYTOCLASTIC VASCULITIS [None]
